FAERS Safety Report 6271813-9 (Version None)
Quarter: 2009Q3

REPORT INFORMATION
  Report Type: 
  Country: None (occurrence: None)
  Receive Date: 20090717
  Receipt Date: 20090708
  Transmission Date: 20100115
  Serious: Yes (Other)
  Sender: FDA-Public Use
  Company Number: US-PFIZER INC-2009227426

PATIENT
  Sex: Female

DRUGS (1)
  1. NORVASC [Suspect]

REACTIONS (5)
  - ATAXIA [None]
  - MUSCLE TWITCHING [None]
  - PARKINSONISM [None]
  - VERTIGO [None]
  - VESTIBULAR DISORDER [None]
